FAERS Safety Report 5221523-1 (Version None)
Quarter: 2007Q1

REPORT INFORMATION
  Report Type: 
  Country: None (occurrence: None)
  Receive Date: 20070126
  Receipt Date: 20070119
  Transmission Date: 20070707
  Serious: Yes (Hospitalization)
  Sender: FDA-Public Use
  Company Number: BR-PFIZER INC-2007005919

PATIENT
  Sex: Female

DRUGS (5)
  1. LIPITOR [Suspect]
     Route: 048
  2. AAS [Concomitant]
     Route: 048
  3. FLUOXETINE [Concomitant]
     Route: 048
  4. CARVEDILOL [Concomitant]
     Route: 048
  5. AMITRIL [Concomitant]
     Route: 048

REACTIONS (1)
  - CARDIAC DISORDER [None]
